FAERS Safety Report 6319570-1 (Version None)
Quarter: 2009Q3

REPORT INFORMATION
  Report Type: 
  Country: None (occurrence: None)
  Receive Date: 20090822
  Receipt Date: 20080926
  Transmission Date: 20100115
  Serious: No
  Sender: FDA-Public Use
  Company Number: US-ABBOTT-08P-163-0476896-00

PATIENT
  Sex: Female
  Weight: 77.18 kg

DRUGS (13)
  1. NIASPAN [Suspect]
     Indication: BLOOD CHOLESTEROL INCREASED
     Route: 048
     Dates: start: 20080829
  2. LOSARTAN POTASSIUM [Concomitant]
     Indication: BLOOD PRESSURE
     Route: 048
  3. METOPROLOL [Concomitant]
     Indication: DRUG USE FOR UNKNOWN INDICATION
     Route: 048
  4. ATORVASTATIN CALCIUM [Concomitant]
     Indication: BLOOD CHOLESTEROL
     Route: 048
  5. ASPIRIN [Concomitant]
     Indication: DRUG USE FOR UNKNOWN INDICATION
     Route: 048
  6. CLOPIDOGREL [Concomitant]
     Indication: MYOCARDIAL INFARCTION
     Route: 048
     Dates: start: 20080701
  7. CLOPIDOGREL [Concomitant]
     Indication: STENT PLACEMENT
  8. PANTOPRAZOLE SODIUM [Concomitant]
     Indication: GASTROOESOPHAGEAL REFLUX DISEASE
     Route: 048
  9. SERETIDE [Concomitant]
     Indication: EMPHYSEMA
     Dosage: 250/50
     Route: 055
  10. BREVA [Concomitant]
     Indication: EMPHYSEMA
     Route: 055
  11. IBUPROFEN [Concomitant]
     Indication: FLUSHING
     Route: 048
     Dates: start: 20080829
  12. IBUPROFEN [Concomitant]
     Indication: PROPHYLAXIS
  13. CARISOPRODOL [Concomitant]
     Indication: INSOMNIA
     Route: 048
     Dates: start: 20080903

REACTIONS (1)
  - FLUSHING [None]
